FAERS Safety Report 22665438 (Version 2)
Quarter: 2024Q3

REPORT INFORMATION
  Report Type: Spontaneous
  Country: BR (occurrence: BR)
  Receive Date: 20230703
  Receipt Date: 20240927
  Transmission Date: 20241017
  Serious: Yes (Other)
  Sender: RANBAXY
  Company Number: BR-SUN PHARMACEUTICAL INDUSTRIES LTD-2023R1-381598

PATIENT
  Sex: Male
  Weight: 75 kg

DRUGS (14)
  1. CAPECITABINE [Suspect]
     Active Substance: CAPECITABINE
     Indication: Gastrointestinal carcinoma
     Dosage: UNK, 7 PILLS A DAY
     Route: 048
     Dates: start: 20220908, end: 20230222
  2. LOSARTAN POTASSIUM [Concomitant]
     Active Substance: LOSARTAN POTASSIUM
     Indication: Hypertension
     Dosage: 25 MILLIGRAM, QD
     Route: 065
  3. CARVEDILOL [Concomitant]
     Active Substance: CARVEDILOL
     Indication: Hypertension
     Dosage: 6.25 MILLIGRAM, QD
     Route: 065
  4. DIOSMIN [Concomitant]
     Active Substance: DIOSMIN
     Indication: Pulmonary vascular disorder
     Dosage: 450 MILLIGRAM, QD
     Route: 065
  5. DONEPEZIL HYDROCHLORIDE [Concomitant]
     Active Substance: DONEPEZIL HYDROCHLORIDE
     Indication: Parkinson^s disease
     Dosage: 10 MILLIGRAM
     Route: 065
  6. FUROSEMIDE [Concomitant]
     Active Substance: FUROSEMIDE
     Indication: Hypertension
     Dosage: 40 MILLIGRAM, HALF TABLET IN THE MORNING
     Route: 065
  7. METFORMIN HYDROCHLORIDE [Concomitant]
     Active Substance: METFORMIN HYDROCHLORIDE
     Indication: Diabetes mellitus
     Dosage: 500 MILLIGRAM, QD
     Route: 065
  8. BENSERAZIDE\LEVODOPA [Concomitant]
     Active Substance: BENSERAZIDE\LEVODOPA
     Indication: Parkinson^s disease
     Dosage: UNK, 100/25 MILLIGRAM, 1 AND A HALF TABLET 3 TIMES A DAY
     Route: 065
  9. RIVOTRIL [Concomitant]
     Active Substance: CLONAZEPAM
     Indication: Depression
     Dosage: 4 DROPS BEFORE BED
     Route: 065
  10. RIVOTRIL [Concomitant]
     Active Substance: CLONAZEPAM
     Indication: Anxiety
  11. ROSUVASTATIN [Concomitant]
     Active Substance: ROSUVASTATIN\ROSUVASTATIN CALCIUM
     Indication: Blood cholesterol
     Dosage: 20 MILLIGRAM, QD
     Route: 065
  12. ASPIRIN\DIHYDROXYALUMINUM AMINOACETATE ANHYDROUS\MAGNESIUM CARBONATE [Concomitant]
     Active Substance: ASPIRIN\DIHYDROXYALUMINUM AMINOACETATE ANHYDROUS\MAGNESIUM CARBONATE
     Indication: Pulmonary vascular disorder
     Dosage: 100 MILLIGRAM, QD
     Route: 065
  13. VENLAFAXINE HYDROCHLORIDE [Concomitant]
     Active Substance: VENLAFAXINE HYDROCHLORIDE
     Indication: Depression
     Dosage: 150 MILLIGRAM, QD
     Route: 065
  14. VENLAFAXINE HYDROCHLORIDE [Concomitant]
     Active Substance: VENLAFAXINE HYDROCHLORIDE
     Indication: Anxiety

REACTIONS (1)
  - Liver injury [Not Recovered/Not Resolved]
